FAERS Safety Report 13662967 (Version 1)
Quarter: 2017Q2

REPORT INFORMATION
  Report Type: Report from Study
  Country: None (occurrence: BR)
  Receive Date: 20170619
  Receipt Date: 20170619
  Transmission Date: 20170830
  Serious: Yes (Other)
  Sender: FDA-Public Use
  Company Number: BR-ABBVIE-17K-020-2006781-00

PATIENT
  Age: 71 Year
  Sex: Female
  Weight: 66 kg

DRUGS (5)
  1. NIMESULIDE [Suspect]
     Active Substance: NIMESULIDE
     Indication: PHLEBITIS
     Route: 048
     Dates: start: 20170610, end: 20170611
  2. HUMIRA [Suspect]
     Active Substance: ADALIMUMAB
     Indication: RHEUMATOID ARTHRITIS
     Route: 058
     Dates: start: 20170516
  3. INSULIN [Concomitant]
     Active Substance: INSULIN NOS
     Indication: PRODUCT USED FOR UNKNOWN INDICATION
  4. NIMESULIDE [Suspect]
     Active Substance: NIMESULIDE
     Indication: PAIN
  5. LEFLUNOMIDE. [Concomitant]
     Active Substance: LEFLUNOMIDE
     Indication: ARTHRITIS

REACTIONS (10)
  - Depressed mood [Unknown]
  - Vomiting [Recovering/Resolving]
  - Vascular pain [Recovering/Resolving]
  - Vision blurred [Not Recovered/Not Resolved]
  - Nausea [Recovering/Resolving]
  - Gait disturbance [Unknown]
  - Phlebitis [Recovering/Resolving]
  - Gastric disorder [Recovering/Resolving]
  - Blood glucose increased [Unknown]
  - Crying [Unknown]

NARRATIVE: CASE EVENT DATE: 2017
